FAERS Safety Report 21941517 (Version 1)
Quarter: 2023Q1

REPORT INFORMATION
  Report Type: Spontaneous
  Country: US (occurrence: US)
  Receive Date: 20230202
  Receipt Date: 20230202
  Transmission Date: 20230418
  Serious: No
  Sender: FDA-Public Use
  Company Number: US-EXELIXIS-CABO-22054979

PATIENT
  Age: 86 Year
  Sex: Female

DRUGS (2)
  1. CABOMETYX [Suspect]
     Active Substance: CABOZANTINIB S-MALATE
     Indication: Papillary renal cell carcinoma
     Dosage: 40 MG, QD
     Route: 048
     Dates: start: 20220728
  2. OPDIVO [Suspect]
     Active Substance: NIVOLUMAB
     Indication: Papillary renal cell carcinoma
     Dosage: 240 MG, Q2WEEKS
     Dates: start: 20220728

REACTIONS (6)
  - Burning sensation [Unknown]
  - Pruritus [Unknown]
  - Nausea [Unknown]
  - Taste disorder [Unknown]
  - Fatigue [Unknown]
  - Blood creatinine increased [Unknown]

NARRATIVE: CASE EVENT DATE: 20220801
